FAERS Safety Report 7631806-3 (Version None)
Quarter: 2011Q3

REPORT INFORMATION
  Report Type: 
  Country: None (occurrence: None)
  Receive Date: 20110725
  Receipt Date: 20110404
  Transmission Date: 20111222
  Serious: No
  Sender: FDA-Public Use
  Company Number: US-BRISTOL-MYERS SQUIBB COMPANY-15652050

PATIENT
  Age: 83 Year
  Sex: Female

DRUGS (2)
  1. COUMADIN [Suspect]
     Indication: THROMBOSIS
  2. LOVENOX [Suspect]
     Indication: THROMBOSIS
     Route: 058
     Dates: start: 20110316

REACTIONS (1)
  - PAIN IN EXTREMITY [None]
